FAERS Safety Report 18235839 (Version 15)
Quarter: 2021Q3

REPORT INFORMATION
  Report Type: Report from Study
  Country: FR (occurrence: FR)
  Receive Date: 20200905
  Receipt Date: 20210806
  Transmission Date: 20211014
  Serious: Yes (Death, Life-Threatening, Hospitalization, Other)
  Sender: FDA-Public Use
  Company Number: FR-SA-2020SA239827

PATIENT
  Age: 74 Year
  Sex: Male

DRUGS (94)
  1. LANSOPRAZOLE. [Suspect]
     Active Substance: LANSOPRAZOLE
     Dosage: 3 MG, QD
     Route: 048
     Dates: start: 20200710, end: 20200805
  2. PARACETAMOL [Suspect]
     Active Substance: ACETAMINOPHEN
     Indication: PYREXIA
     Dosage: 1 GRAM
     Route: 042
     Dates: start: 20200719, end: 20200730
  3. OXAZEPAM. [Suspect]
     Active Substance: OXAZEPAM
     Dosage: 10 MILLIGRAM, QD
     Route: 048
  4. OXAZEPAM. [Suspect]
     Active Substance: OXAZEPAM
     Dosage: 90 MILLIGRAM
     Route: 065
  5. MORPHINE HYDROCHLORIDE [Suspect]
     Active Substance: MORPHINE HYDROCHLORIDE
     Dosage: UNK
     Route: 065
  6. SUFENTANIL [Suspect]
     Active Substance: SUFENTANIL
     Indication: SEDATION
     Dosage: UNK
     Route: 065
  7. THIAMINE HYDROCHLORIDE. [Suspect]
     Active Substance: THIAMINE HYDROCHLORIDE
     Dosage: UNK
     Route: 065
  8. SPIRAMYCIN [Suspect]
     Active Substance: SPIRAMYCIN
     Indication: PNEUMONIA
     Dosage: 9 MEGA?INTERNATIONAL UNIT, QD (3 MEGA?INTERNATIONAL UNIT TID)
     Route: 042
     Dates: start: 20200708, end: 20200715
  9. CEFOTAXIME [Suspect]
     Active Substance: CEFOTAXIME SODIUM
     Dosage: 42 G
     Route: 042
  10. PIPERACILLIN/TAZOBACTAM [Suspect]
     Active Substance: PIPERACILLIN SODIUM\TAZOBACTAM SODIUM
     Indication: TRACHEOBRONCHITIS
     Dosage: 12 GRAM, QD (4G, TID)
     Route: 042
     Dates: start: 20200723, end: 20200730
  11. PIPERACILLIN/TAZOBACTAM [Suspect]
     Active Substance: PIPERACILLIN SODIUM\TAZOBACTAM SODIUM
     Dosage: 84 G
     Route: 042
  12. DIAZEPAM. [Suspect]
     Active Substance: DIAZEPAM
     Indication: PRODUCT USED FOR UNKNOWN INDICATION
     Dosage: UNK
     Route: 065
  13. PARACETAMOL [Suspect]
     Active Substance: ACETAMINOPHEN
     Dosage: 1 GRAM, PRN
     Route: 042
     Dates: start: 20200719, end: 20200730
  14. OXAZEPAM. [Suspect]
     Active Substance: OXAZEPAM
     Dosage: 20 MG, QD
     Route: 048
  15. PROPOFOL. [Suspect]
     Active Substance: PROPOFOL
     Dosage: 150 MG/HR, CO
     Route: 042
     Dates: start: 20200709, end: 20200720
  16. LACTULOSE. [Suspect]
     Active Substance: LACTULOSE
     Dosage: 80 GRAM
     Route: 048
  17. THIAMINE HYDROCHLORIDE. [Suspect]
     Active Substance: THIAMINE HYDROCHLORIDE
     Indication: PRODUCT USED FOR UNKNOWN INDICATION
     Dosage: UNK
     Route: 065
  18. LOVENOX [Suspect]
     Active Substance: ENOXAPARIN SODIUM
     Indication: PHLEBITIS
     Dosage: 6000 IU, SINGLE
     Route: 058
     Dates: start: 20200708, end: 20200807
  19. LOVENOX [Suspect]
     Active Substance: ENOXAPARIN SODIUM
     Dosage: 6000 INTERNATIONAL UNIT
     Route: 058
  20. MORPHINE SULFATE. [Suspect]
     Active Substance: MORPHINE SULFATE
     Indication: PRODUCT USED FOR UNKNOWN INDICATION
     Dosage: UNK
     Route: 065
  21. INSULIN LISPRO [Suspect]
     Active Substance: INSULIN LISPRO
     Indication: PRODUCT USED FOR UNKNOWN INDICATION
     Dosage: 1 IU
     Route: 042
     Dates: start: 20200709, end: 20200730
  22. CEFOTAXIME [Suspect]
     Active Substance: CEFOTAXIME SODIUM
     Indication: PNEUMONIA
     Dosage: 6 GRAM, 7 DAY
     Route: 042
     Dates: start: 20200708, end: 20200715
  23. POTASSIUM GLUCONATE [Suspect]
     Active Substance: POTASSIUM GLUCONATE
     Indication: PRODUCT USED FOR UNKNOWN INDICATION
     Dosage: UNK
     Route: 065
  24. HYDROXYCARBAMIDE [Concomitant]
     Active Substance: HYDROXYUREA
     Route: 065
  25. HYDROXYZINE [Suspect]
     Active Substance: HYDROXYZINE HYDROCHLORIDE
     Dosage: UNK
     Route: 065
  26. TIORFAN [Suspect]
     Active Substance: RACECADOTRIL
     Indication: PRODUCT USED FOR UNKNOWN INDICATION
     Dosage: 100 MG
     Route: 058
     Dates: start: 20200727, end: 20200804
  27. LACTULOSE. [Suspect]
     Active Substance: LACTULOSE
     Dosage: 80 MG
     Route: 048
  28. NOREPINEPHRINE. [Suspect]
     Active Substance: NOREPINEPHRINE
     Dosage: 0.8 MG/HR, CO
     Route: 042
     Dates: start: 20200709, end: 20200712
  29. LOPERAMIDE [Suspect]
     Active Substance: LOPERAMIDE
     Indication: DIARRHOEA
     Dosage: 4 MG, QD
     Route: 048
     Dates: start: 20200804, end: 20200804
  30. METHYLPREDNISOLONE. [Suspect]
     Active Substance: METHYLPREDNISOLONE
     Dosage: 120 MILLIGRAM, QD
     Route: 042
     Dates: start: 20200708, end: 20200723
  31. MORPHINE SULFATE. [Suspect]
     Active Substance: MORPHINE SULFATE
     Route: 065
  32. LOPERAMIDE HYDROCHLORIDE. [Suspect]
     Active Substance: LOPERAMIDE HYDROCHLORIDE
     Dosage: 4 MILLIGRAM
     Route: 048
     Dates: start: 20200804, end: 20200804
  33. MACROGOL 4000 [Suspect]
     Active Substance: POLYETHYLENE GLYCOL 4000
     Indication: CONSTIPATION
     Dosage: 2 SACHET, BID
     Route: 048
     Dates: start: 20200713, end: 20200715
  34. GLUCONATE DE CALCIUM [Suspect]
     Active Substance: CALCIUM GLUCONATE
     Indication: PRODUCT USED FOR UNKNOWN INDICATION
     Dosage: UNK
     Route: 065
  35. REMIFENTANIL HYDROCHLORIDE. [Suspect]
     Active Substance: REMIFENTANIL HYDROCHLORIDE
     Indication: SEDATION
     Dosage: UNK
     Route: 042
     Dates: start: 20200720, end: 20200730
  36. KARDEGIC [Concomitant]
     Active Substance: ASPIRIN DL-LYSINE
     Indication: PRODUCT USED FOR UNKNOWN INDICATION
     Dosage: UNK
     Route: 065
  37. LANSOPRAZOLE. [Suspect]
     Active Substance: LANSOPRAZOLE
     Indication: GASTROINTESTINAL DISORDER PROPHYLAXIS
     Dosage: 3 MG, QD
     Route: 048
     Dates: start: 20200210, end: 20200805
  38. FUROSEMIDE. [Suspect]
     Active Substance: FUROSEMIDE
     Indication: PRODUCT USED FOR UNKNOWN INDICATION
     Dosage: UNK
     Route: 065
  39. FUROSEMIDE. [Suspect]
     Active Substance: FUROSEMIDE
     Route: 065
  40. HYDROXYZINE [Suspect]
     Active Substance: HYDROXYZINE HYDROCHLORIDE
     Indication: PRODUCT USED FOR UNKNOWN INDICATION
     Dosage: UNK
     Route: 065
  41. MIDAZOLAM. [Suspect]
     Active Substance: MIDAZOLAM
     Indication: SEDATION
     Dosage: 5 MG/HR, CO
     Route: 042
     Dates: start: 20200709, end: 20200713
  42. OXAZEPAM. [Suspect]
     Active Substance: OXAZEPAM
     Indication: ANXIOLYTIC THERAPY
     Dosage: 10 MILLIGRAM, QD
     Route: 048
     Dates: start: 20200802, end: 20200804
  43. MORPHINE HYDROCHLORIDE [Suspect]
     Active Substance: MORPHINE HYDROCHLORIDE
     Indication: PRODUCT USED FOR UNKNOWN INDICATION
     Dosage: UNK
     Route: 065
  44. PHOSPHONEUROS [Suspect]
     Active Substance: CALCIUM PHOSPHATE, DIBASIC, ANHYDROUS\MAGNESIUM GLYCEROPHOSPHATE\PHOSPHORIC ACID\SODIUM PHOSPHATE, DIBASIC
     Indication: PNEUMONIA
     Dosage: 6 GRAM, QD
     Route: 042
     Dates: start: 20200708, end: 20200715
  45. ISUPREL [Suspect]
     Active Substance: ISOPROTERENOL HYDROCHLORIDE
     Indication: PRODUCT USED FOR UNKNOWN INDICATION
     Dosage: UNK
     Route: 065
     Dates: start: 20200711, end: 20200713
  46. SERTRALINE [Suspect]
     Active Substance: SERTRALINE HYDROCHLORIDE
     Dosage: 746.354 MG
     Route: 048
  47. TIORFAN [Suspect]
     Active Substance: RACECADOTRIL
     Dosage: UNK
     Route: 065
     Dates: start: 20200727, end: 20200804
  48. LACTULOSE. [Suspect]
     Active Substance: LACTULOSE
     Indication: CONSTIPATION
     Dosage: 40 GRAM, QD, 20G EVERY HALF DAY
     Route: 048
     Dates: start: 20200713, end: 20200715
  49. NOREPINEPHRINE. [Suspect]
     Active Substance: NOREPINEPHRINE
     Indication: SEDATION
     Dosage: 8 MG, 3 DAY
     Route: 042
     Dates: start: 20200709, end: 20200712
  50. METHYLPREDNISOLONE. [Suspect]
     Active Substance: METHYLPREDNISOLONE
     Indication: ACUTE RESPIRATORY DISTRESS SYNDROME
     Dosage: 1200 MILLIGRAM, QD
     Route: 042
     Dates: start: 20200708, end: 20200723
  51. AMIODARONE HYDROCHLORIDE. [Suspect]
     Active Substance: AMIODARONE HYDROCHLORIDE
     Indication: ATRIAL FIBRILLATION
     Dosage: 907.2 MG, QD
     Route: 042
     Dates: start: 20200725, end: 20200727
  52. URAPIDIL [Suspect]
     Active Substance: URAPIDIL
     Indication: HYPERTENSION
     Dosage: 5 MILLIGRAM, QD
     Route: 042
     Dates: start: 20200709, end: 20200709
  53. NIMBEX [Suspect]
     Active Substance: CISATRACURIUM BESYLATE
     Indication: ENDOTRACHEAL INTUBATION
     Dosage: 20 MILLIGRAM
     Route: 042
     Dates: start: 20200715, end: 20200715
  54. OTILIMAB. [Suspect]
     Active Substance: OTILIMAB
     Indication: COVID-19
     Dosage: 1 DF
     Route: 058
     Dates: start: 20200708
  55. SERTRALINE [Suspect]
     Active Substance: SERTRALINE HYDROCHLORIDE
     Indication: DEPRESSION
     Dosage: 50 MILLIGRAM, QD
     Route: 048
     Dates: start: 20200726, end: 20200810
  56. SERTRALINE [Suspect]
     Active Substance: SERTRALINE HYDROCHLORIDE
     Indication: PNEUMONIA
     Dosage: 50 MG, QD
     Route: 048
  57. POTASSIUM CHLORIDE. [Suspect]
     Active Substance: POTASSIUM CHLORIDE
     Indication: PRODUCT USED FOR UNKNOWN INDICATION
     Dosage: UNK
     Route: 065
  58. ISOSORBIDE DINITRATE. [Suspect]
     Active Substance: ISOSORBIDE DINITRATE
     Indication: PRODUCT USED FOR UNKNOWN INDICATION
     Dosage: UNK
     Route: 065
     Dates: start: 20200714, end: 20200720
  59. LORAZEPAM. [Suspect]
     Active Substance: LORAZEPAM
     Dosage: 2.5 MILLIGRAM
     Route: 048
     Dates: start: 20200726, end: 20200727
  60. AMIODARONE HYDROCHLORIDE. [Suspect]
     Active Substance: AMIODARONE HYDROCHLORIDE
     Dosage: 1814.4 MG CUMULATIVE DOSE
     Route: 065
     Dates: start: 20200725, end: 20200727
  61. REMIFENTANIL [Suspect]
     Active Substance: REMIFENTANIL
     Indication: SEDATION
     Dosage: 0.1 MCG/KG/MIN, CO
     Route: 042
     Dates: start: 20200720, end: 20200730
  62. FENOTEROL;IPRATROPIUM [Suspect]
     Active Substance: FENOTEROL\IPRATROPIUM
     Indication: INHALATION THERAPY
     Dosage: 1.5 MILLIGRAM, QD
     Route: 055
     Dates: start: 20200730, end: 20200803
  63. FENOTEROL;IPRATROPIUM [Suspect]
     Active Substance: FENOTEROL\IPRATROPIUM
     Dosage: 6 MG
     Route: 055
  64. OTILIMAB. [Suspect]
     Active Substance: OTILIMAB
     Indication: CORONAVIRUS INFECTION
  65. PHOSPHONEUROS [Suspect]
     Active Substance: CALCIUM PHOSPHATE, DIBASIC, ANHYDROUS\MAGNESIUM GLYCEROPHOSPHATE\PHOSPHORIC ACID\SODIUM PHOSPHATE, DIBASIC
     Route: 065
  66. GLUCONATE DE POTASSIUM [Concomitant]
     Active Substance: POTASSIUM GLUCONATE
     Route: 065
  67. LANSOPRAZOLE. [Suspect]
     Active Substance: LANSOPRAZOLE
     Dosage: 78 MG
     Route: 048
  68. SERTRALINE [Suspect]
     Active Substance: SERTRALINE HYDROCHLORIDE
  69. PROPOFOL. [Suspect]
     Active Substance: PROPOFOL
     Indication: SEDATION
     Dosage: 150 MG, QH
     Route: 042
     Dates: start: 20200709, end: 20200720
  70. LACTULOSE. [Suspect]
     Active Substance: LACTULOSE
     Indication: PRODUCT USED FOR UNKNOWN INDICATION
     Dosage: 40 MG
     Route: 048
  71. DIAMOX SEQUELS [Suspect]
     Active Substance: ACETAZOLAMIDE
     Indication: PRODUCT USED FOR UNKNOWN INDICATION
     Dosage: UNK
     Route: 065
  72. LORAZEPAM. [Suspect]
     Active Substance: LORAZEPAM
     Dosage: 10 MG
     Route: 048
  73. LOPERAMIDE [Suspect]
     Active Substance: LOPERAMIDE
     Dosage: 4 MG
     Route: 065
  74. METHYLPREDNISOLONE. [Suspect]
     Active Substance: METHYLPREDNISOLONE
     Dosage: 1800 MILLIGRAM,
     Route: 042
  75. FENOTEROL;IPRATROPIUM [Suspect]
     Active Substance: FENOTEROL\IPRATROPIUM
     Dosage: 0.5 MG, TID
     Route: 055
     Dates: start: 20200730, end: 20200803
  76. PHOSPHONEUROS [Suspect]
     Active Substance: CALCIUM PHOSPHATE, DIBASIC, ANHYDROUS\MAGNESIUM GLYCEROPHOSPHATE\PHOSPHORIC ACID\SODIUM PHOSPHATE, DIBASIC
     Indication: PNEUMONIA
  77. CEFOTAXIME [Suspect]
     Active Substance: CEFOTAXIME SODIUM
     Dosage: 2 G, TID
     Route: 042
     Dates: start: 20200708, end: 20200715
  78. ATORVASTATINE [ATORVASTATIN] [Concomitant]
     Active Substance: ATORVASTATIN
     Indication: PRODUCT USED FOR UNKNOWN INDICATION
     Dosage: UNK
     Route: 065
  79. ATORVASTATINE [ATORVASTATIN] [Concomitant]
     Active Substance: ATORVASTATIN
     Route: 065
  80. KARDEGIC [Concomitant]
     Active Substance: ASPIRIN DL-LYSINE
     Dosage: UNK
     Route: 065
  81. HYDROXYCARBAMIDE [Concomitant]
     Active Substance: HYDROXYUREA
     Indication: PRODUCT USED FOR UNKNOWN INDICATION
     Dosage: UNK
     Route: 065
  82. LANSOPRAZOLE. [Suspect]
     Active Substance: LANSOPRAZOLE
     Dosage: 30 MILLIGRAM, QD
     Route: 048
     Dates: start: 20200710, end: 20200805
  83. SERTRALINE [Suspect]
     Active Substance: SERTRALINE HYDROCHLORIDE
     Dosage: 3 IU, TID
     Route: 042
     Dates: start: 20200708, end: 20200715
  84. HYDROXYZINE [Suspect]
     Active Substance: HYDROXYZINE HYDROCHLORIDE
     Indication: PRODUCT USED FOR UNKNOWN INDICATION
     Dosage: UNK
     Route: 065
  85. POTASSIUM CHLORIDE. [Suspect]
     Active Substance: POTASSIUM CHLORIDE
     Route: 065
  86. SUFENTANIL [Suspect]
     Active Substance: SUFENTANIL
     Indication: GAIT DISTURBANCE
     Dosage: 33 MICROGRAM
     Route: 042
     Dates: start: 20200709, end: 20200717
  87. DIAMOX SEQUELS [Suspect]
     Active Substance: ACETAZOLAMIDE
     Route: 065
  88. LORAZEPAM. [Suspect]
     Active Substance: LORAZEPAM
     Indication: ANXIOLYTIC THERAPY
     Dosage: 10 MG, QD
     Route: 048
     Dates: start: 20200726, end: 20200727
  89. LORAZEPAM. [Suspect]
     Active Substance: LORAZEPAM
     Dosage: 10 MILLIGRAM,QD
     Route: 048
  90. METHYLPREDNISOLONE. [Suspect]
     Active Substance: METHYLPREDNISOLONE
     Dosage: 1200 MILLIGRAM, QD
     Route: 042
  91. LOPERAMIDE HYDROCHLORIDE. [Suspect]
     Active Substance: LOPERAMIDE HYDROCHLORIDE
     Indication: DIARRHOEA
     Dosage: 4 MG
  92. CATAPRESSAN [CLONIDINE HYDROCHLORIDE] [Suspect]
     Active Substance: CLONIDINE HYDROCHLORIDE
     Indication: HYPERTENSION
     Dosage: UNK
     Route: 065
     Dates: start: 20200717, end: 20200717
  93. NIMBEX [Suspect]
     Active Substance: CISATRACURIUM BESYLATE
     Indication: NEUROMUSCULAR BLOCKING THERAPY
     Dosage: UNK
     Route: 065
  94. GLUCONATE DE POTASSIUM [Concomitant]
     Active Substance: POTASSIUM GLUCONATE
     Indication: PRODUCT USED FOR UNKNOWN INDICATION
     Dosage: UNK
     Route: 065

REACTIONS (1)
  - Toxic epidermal necrolysis [Fatal]

NARRATIVE: CASE EVENT DATE: 20200809
